FAERS Safety Report 24377559 (Version 1)
Quarter: 2024Q3

REPORT INFORMATION
  Report Type: Spontaneous
  Country: US (occurrence: None)
  Receive Date: 20240928
  Receipt Date: 20240928
  Transmission Date: 20241016
  Serious: Yes (Life-Threatening, Other)
  Sender: Public
  Company Number: None

PATIENT
  Age: 27 Year
  Sex: Male
  Weight: 81 kg

DRUGS (1)
  1. HERBALS\MITRAGYNINE [Suspect]
     Active Substance: HERBALS\MITRAGYNINE
     Indication: Insomnia
     Dosage: OTHER QUANTITY : 6 USES?FREQUENCY : AS NEEDED?
     Route: 048
     Dates: start: 20240907, end: 20240928

REACTIONS (6)
  - Vision blurred [None]
  - Nausea [None]
  - Coordination abnormal [None]
  - Tremor [None]
  - Cold sweat [None]
  - Impaired driving ability [None]

NARRATIVE: CASE EVENT DATE: 20240928
